FAERS Safety Report 7880424-0 (Version None)
Quarter: 2011Q4

REPORT INFORMATION
  Report Type: 
  Country: None (occurrence: None)
  Receive Date: 20111101
  Receipt Date: 20111024
  Transmission Date: 20120403
  Serious: Yes (Other)
  Sender: FDA-Public Use
  Company Number: PHHY2010DE17478

PATIENT
  Sex: Male

DRUGS (6)
  1. CLOZAPINE [Suspect]
     Dosage: 100 MG, UNK
     Route: 048
  2. CLOZAPINE [Suspect]
     Dosage: 225 MG, DAILY
     Route: 048
  3. CLOZAPINE [Suspect]
     Dosage: 275 MG, UNK
     Route: 048
  4. INVEGA [Concomitant]
     Dosage: 1 DF DAILY
  5. DIAZEPAM [Concomitant]
     Dosage: 3 TABLETS/ NIGHT
     Route: 048
  6. CLOZAPINE [Suspect]
     Dosage: 150 MG, QD
     Route: 048
     Dates: start: 20110601

REACTIONS (6)
  - SEDATION [None]
  - COAGULOPATHY [None]
  - CARCINOEMBRYONIC ANTIGEN INCREASED [None]
  - DEPRESSION [None]
  - HYPERHOMOCYSTEINAEMIA [None]
  - HAEMOGLOBIN DECREASED [None]
